FAERS Safety Report 4541174-1 (Version None)
Quarter: 2004Q4

REPORT INFORMATION
  Report Type: 
  Country: None (occurrence: None)
  Receive Date: 20041227
  Receipt Date: 20041221
  Transmission Date: 20050328
  Serious: Yes (Hospitalization)
  Sender: FDA-Public Use
  Company Number: HQWYE131821DEC04

PATIENT
  Age: 77 Year
  Sex: Female

DRUGS (14)
  1. CORDARONE [Suspect]
     Indication: ATRIAL FIBRILLATION
     Dosage: SEE IMAGE
     Route: 048
     Dates: start: 20041109, end: 20041109
  2. CORDARONE [Suspect]
     Indication: ATRIAL FIBRILLATION
     Dosage: SEE IMAGE
     Route: 048
     Dates: start: 20041110, end: 20041110
  3. CORDARONE [Suspect]
     Indication: ATRIAL FIBRILLATION
     Dosage: SEE IMAGE
     Route: 048
     Dates: start: 20041111, end: 20041111
  4. CORDARONE [Suspect]
     Indication: ATRIAL FIBRILLATION
     Dosage: SEE IMAGE
     Route: 048
     Dates: start: 20041112
  5. ACETAMINOPHEN [Suspect]
     Dosage: 1000 MG 3X PER 1 DAY
     Route: 048
     Dates: start: 20041010
  6. DEPAKINE CHRONO (VALPROATE SODIUM/VALPROATE ACID) [Suspect]
     Dosage: SEE IMAGE
     Route: 048
     Dates: start: 20041014, end: 20041114
  7. DEPAKINE CHRONO (VALPROATE SODIUM/VALPROATE ACID) [Suspect]
     Dosage: SEE IMAGE
     Route: 048
     Dates: start: 20041115, end: 20041115
  8. DEPAKINE CHRONO (VALPROATE SODIUM/VALPROATE ACID) [Suspect]
     Dosage: SEE IMAGE
     Route: 048
     Dates: start: 20041116
  9. PAROXETINE HCL [Suspect]
     Dosage: 20 MG 1X PER 1 DAY
     Route: 048
     Dates: start: 20041018
  10. FONZYLANE (BUFLOMEDIL HYDROCHLORIDE) [Suspect]
     Dosage: 450 MG 1X PER 1 DAY
     Route: 048
     Dates: start: 20041018
  11. OMEPRAZOLE [Suspect]
     Dosage: 20 MG 1X PER 1 DAY
     Route: 048
     Dates: start: 20041018
  12. PLAVIX [Concomitant]
  13. QUINAPRIL HCL [Concomitant]
  14. DUPHALAC [Concomitant]

REACTIONS (6)
  - ATRIAL FIBRILLATION [None]
  - CONDITION AGGRAVATED [None]
  - DRUG LEVEL DECREASED [None]
  - EXTRAPYRAMIDAL DISORDER [None]
  - MUSCLE RIGIDITY [None]
  - TREMOR [None]
